FAERS Safety Report 9848223 (Version 3)
Quarter: 2014Q1

REPORT INFORMATION
  Report Type: Spontaneous
  Country: NL (occurrence: NL)
  Receive Date: 20140128
  Receipt Date: 20140307
  Transmission Date: 20141002
  Serious: Yes (Other)
  Sender: FDA-Public Use
  Company Number: PHHY2013NL154149

PATIENT
  Sex: 0

DRUGS (3)
  1. EVEROLIMUS [Suspect]
     Indication: BREAST CANCER METASTATIC
     Dosage: UNK
     Route: 048
     Dates: start: 20131004, end: 20131217
  2. THYRAX [Concomitant]
  3. ESOMEPRAZOLE [Concomitant]

REACTIONS (10)
  - Cardiac disorder [Unknown]
  - Pulmonary oedema [Unknown]
  - Pericardial effusion [Unknown]
  - Blood urine present [Recovered/Resolved]
  - Oral disorder [Unknown]
  - Lung disorder [Unknown]
  - Renal impairment [Unknown]
  - Dyspnoea [Unknown]
  - Metastases to bladder [Unknown]
  - Breast cancer [Unknown]
